FAERS Safety Report 8849422 (Version 5)
Quarter: 2013Q1

REPORT INFORMATION
  Report Type: Spontaneous
  Country: US (occurrence: US)
  Receive Date: 20121019
  Receipt Date: 20130211
  Transmission Date: 20140127
  Serious: Yes (Hospitalization, Other)
  Sender: FDA-Public Use
  Company Number: US-PFIZER INC-2012259301

PATIENT
  Age: 57 Year
  Sex: Female

DRUGS (4)
  1. LYRICA [Suspect]
     Indication: FIBROMYALGIA
     Dosage: 75 MG, 2X/DAY
     Route: 048
     Dates: start: 20120313, end: 20120507
  2. CORGARD [Concomitant]
     Indication: SUPRAVENTRICULAR TACHYCARDIA
     Dosage: 20 MG, 2X/DAY
     Route: 048
  3. KLONOPIN [Concomitant]
     Indication: ESSENTIAL TREMOR
     Dosage: 1 MG, 1X/DAY (AT BEDTIME)
     Route: 048
  4. ASPIRIN [Concomitant]
     Dosage: 325 MG/DAY
     Route: 048

REACTIONS (6)
  - Transient ischaemic attack [Recovered/Resolved]
  - Anxiety [Recovered/Resolved]
  - Chest pain [Recovered/Resolved]
  - Hypoaesthesia [Recovered/Resolved]
  - Blood glucose increased [Unknown]
  - Blood potassium decreased [Unknown]
